FAERS Safety Report 12146612 (Version 5)
Quarter: 2017Q1

REPORT INFORMATION
  Report Type: Report from Study
  Country: US (occurrence: US)
  Receive Date: 20160304
  Receipt Date: 20170127
  Transmission Date: 20170428
  Serious: Yes (Hospitalization, Other)
  Sender: FDA-Public Use
  Company Number: US-BAYER-2015-468714

PATIENT
  Age: 81 Year
  Sex: Female
  Weight: 73.47 kg

DRUGS (8)
  1. ADEMPAS [Suspect]
     Active Substance: RIOCIGUAT
     Indication: PULMONARY HYPERTENSION
     Dosage: 0.5 MG, TID
     Route: 048
  2. ADEMPAS [Suspect]
     Active Substance: RIOCIGUAT
     Indication: PULMONARY HYPERTENSION
     Dosage: 2 MG, TID
     Route: 048
     Dates: start: 201510
  3. ADEMPAS [Suspect]
     Active Substance: RIOCIGUAT
     Indication: PULMONARY HYPERTENSION
     Dosage: 2 MG, TID
     Route: 048
     Dates: start: 20160107
  4. ADEMPAS [Suspect]
     Active Substance: RIOCIGUAT
     Indication: PULMONARY HYPERTENSION
     Dosage: 2 MG, TID
     Route: 048
     Dates: start: 201510
  5. ADEMPAS [Suspect]
     Active Substance: RIOCIGUAT
     Indication: PULMONARY HYPERTENSION
     Dosage: 1.5 MG, TID
     Route: 048
  6. ADEMPAS [Suspect]
     Active Substance: RIOCIGUAT
     Indication: PULMONARY HYPERTENSION
     Dosage: 2 MG, TID
     Route: 048
  7. ADEMPAS [Suspect]
     Active Substance: RIOCIGUAT
     Indication: PULMONARY HYPERTENSION
     Dosage: UNK
     Route: 048
     Dates: start: 20151013
  8. ADEMPAS [Suspect]
     Active Substance: RIOCIGUAT
     Indication: PULMONARY HYPERTENSION
     Dosage: 2 MG, TID
     Route: 048

REACTIONS (29)
  - Ligament sprain [Recovering/Resolving]
  - Wrist fracture [None]
  - Back pain [Unknown]
  - Contusion [Unknown]
  - Haemorrhoidal haemorrhage [None]
  - Pruritus [Unknown]
  - Skin discolouration [Unknown]
  - Carpal tunnel syndrome [None]
  - Limb discomfort [Unknown]
  - Balance disorder [None]
  - Fracture [None]
  - Fall [Unknown]
  - Headache [Unknown]
  - Lethargy [Recovered/Resolved]
  - Peripheral swelling [Not Recovered/Not Resolved]
  - Paraesthesia [Not Recovered/Not Resolved]
  - Headache [None]
  - Peripheral swelling [None]
  - Foot fracture [Unknown]
  - Pulmonary thrombosis [Unknown]
  - Cervical vertebral fracture [None]
  - Dry skin [None]
  - Epilepsy [None]
  - Thrombosis [None]
  - Skin lesion [None]
  - Salivary gland neoplasm [Unknown]
  - Nasopharyngitis [Unknown]
  - Pruritus [None]
  - Eye contusion [None]

NARRATIVE: CASE EVENT DATE: 20160414
